FAERS Safety Report 9009873 (Version 2)
Quarter: 2013Q1

REPORT INFORMATION
  Report Type: Report from Study
  Country: US (occurrence: US)
  Receive Date: 20130110
  Receipt Date: 20130115
  Transmission Date: 20140127
  Serious: No
  Sender: FDA-Public Use
  Company Number: US-VERTEX PHARMACEUTICALS INC.-2013-000425

PATIENT
  Sex: Female
  Weight: 84 kg

DRUGS (14)
  1. VX-950 (TELAPREVIR) [Suspect]
     Indication: HEPATITIS C
     Dosage: 750 MG, TID
     Route: 048
     Dates: start: 201202, end: 20120501
  2. VX-950 (TELAPREVIR) [Suspect]
     Dosage: 750 MG, TID
     Route: 048
     Dates: start: 20120830, end: 20121005
  3. PEGASYS [Suspect]
     Indication: HEPATITIS C
     Dosage: 180 ?G, QW
     Route: 058
     Dates: start: 201202, end: 20120501
  4. PEGASYS [Suspect]
     Dosage: 180 ?G, QW
     Route: 058
     Dates: start: 20120830, end: 20121005
  5. PEGASYS [Suspect]
     Dosage: 180 ?G, QW
     Route: 058
     Dates: start: 20121019, end: 201301
  6. RIBAPAK [Suspect]
     Indication: HEPATITIS C
     Dosage: 600 MG, BID
     Dates: start: 201202, end: 20120501
  7. RIBAPAK [Suspect]
     Dosage: 600 MG, BID
     Dates: start: 20120830, end: 20121005
  8. RIBAPAK [Suspect]
     Dosage: 600 MG, BID
     Dates: start: 20121019, end: 201301
  9. FUROSEMIDE [Concomitant]
     Dosage: 40 MG, BID
  10. LISINOPRIL [Concomitant]
     Dosage: 40 MG, QD
  11. SERTRALINE HCL [Concomitant]
     Dosage: 100 MG, QD
  12. VENTOLIN HFA [Concomitant]
     Dosage: 90 ?G, PRN
  13. KLOR-CON [Concomitant]
     Dosage: `10 MG, QD
  14. LEVOTHYROXINE [Concomitant]
     Dosage: 100 ?G, QD

REACTIONS (3)
  - Laboratory test abnormal [Unknown]
  - Haemoglobin decreased [Unknown]
  - Platelet count decreased [Unknown]
